FAERS Safety Report 6114912-4 (Version None)
Quarter: 2009Q1

REPORT INFORMATION
  Report Type: 
  Country: None (occurrence: None)
  Receive Date: 20090313
  Receipt Date: 20090304
  Transmission Date: 20090719
  Serious: Yes (Hospitalization)
  Sender: FDA-Public Use
  Company Number: PHHY2009GB08218

PATIENT
  Age: 78 Year
  Sex: Female

DRUGS (1)
  1. ZOLEDRONIC ACID [Suspect]
     Indication: OSTEITIS DEFORMANS

REACTIONS (8)
  - DIZZINESS [None]
  - EYE PAIN [None]
  - IRITIS [None]
  - MALAISE [None]
  - MUSCLE SPASMS [None]
  - TREMOR [None]
  - VISUAL IMPAIRMENT [None]
  - VOMITING [None]
